FAERS Safety Report 14985195 (Version 4)
Quarter: 2018Q3

REPORT INFORMATION
  Report Type: Report from Study
  Country: ZA (occurrence: ZA)
  Receive Date: 20180607
  Receipt Date: 20180814
  Transmission Date: 20181010
  Serious: Yes (Other)
  Sender: FDA-Public Use
  Company Number: PHHY2017ZA142910

PATIENT
  Age: 28 Year
  Sex: Female
  Weight: 49 kg

DRUGS (1)
  1. EXJADE [Suspect]
     Active Substance: DEFERASIROX
     Indication: THALASSAEMIA
     Dosage: 2000 MG, QD
     Route: 065
     Dates: start: 2015

REACTIONS (4)
  - Haemoglobin decreased [Unknown]
  - Hyperthyroidism [Not Recovered/Not Resolved]
  - Osteoporosis [Not Recovered/Not Resolved]
  - Serum ferritin increased [Not Recovered/Not Resolved]

NARRATIVE: CASE EVENT DATE: 201710
